FAERS Safety Report 9831277 (Version 1)
Quarter: 2014Q1

REPORT INFORMATION
  Report Type: Report from Study
  Country: GB (occurrence: GB)
  Receive Date: 20140121
  Receipt Date: 20140121
  Transmission Date: 20141002
  Serious: Yes (Hospitalization)
  Sender: FDA-Public Use
  Company Number: GB-ROCHE-1334806

PATIENT
  Age: 53 Year
  Sex: Female
  Weight: 89 kg

DRUGS (2)
  1. RITUXIMAB [Suspect]
     Indication: RHEUMATOID ARTHRITIS
     Route: 065
     Dates: start: 20120313
  2. METHOTREXATE [Concomitant]

REACTIONS (1)
  - Chylothorax [Unknown]
